FAERS Safety Report 11443389 (Version 1)
Quarter: 2015Q3

REPORT INFORMATION
  Report Type: Spontaneous
  Country: US (occurrence: US)
  Receive Date: 20150901
  Receipt Date: 20150901
  Transmission Date: 20151125
  Serious: No
  Sender: FDA-Public Use
  Company Number: GXBR2015US001510

PATIENT
  Age: 20 Year
  Sex: Female

DRUGS (1)
  1. AMOXICILLIN+CLARITHROMYCIN+LANSOPRAZOLE [Suspect]
     Active Substance: AMOXICILLIN\CLARITHROMYCIN\LANSOPRAZOLE
     Indication: PRODUCT USED FOR UNKNOWN INDICATION
     Dosage: 30 MG LANSOPRAZOLE / 500 MG CLARITHROMYCIN / 500 MG AMOXICILLIN, UNK
     Route: 065
     Dates: start: 20150522, end: 20150604

REACTIONS (3)
  - Rash [Unknown]
  - Expired product administered [Unknown]
  - Hypersensitivity [Unknown]

NARRATIVE: CASE EVENT DATE: 20150526
